FAERS Safety Report 6028765-6 (Version None)
Quarter: 2009Q1

REPORT INFORMATION
  Report Type: 
  Country: None (occurrence: None)
  Receive Date: 20090106
  Receipt Date: 20090106
  Transmission Date: 20090719
  Serious: Yes (Other)
  Sender: FDA-Public Use
  Company Number: A0762353A

PATIENT
  Age: 85 Year
  Sex: Male

DRUGS (2)
  1. CARVEDILOL [Suspect]
     Route: 065
     Dates: start: 20020101
  2. POLYPHARMACY [Concomitant]

REACTIONS (3)
  - ASTHMA [None]
  - DEAFNESS [None]
  - PRURITUS [None]
